FAERS Safety Report 4859242-3 (Version None)
Quarter: 2005Q4

REPORT INFORMATION
  Report Type: 
  Country: None (occurrence: None)
  Receive Date: 20051219
  Receipt Date: 20051207
  Transmission Date: 20060501
  Serious: Yes (Hospitalization)
  Sender: FDA-Public Use
  Company Number: SE-AMGEN-UK160514

PATIENT
  Sex: Male

DRUGS (1)
  1. CINACALCET [Suspect]
     Indication: HYPERPARATHYROIDISM SECONDARY
     Route: 048
     Dates: start: 20050525

REACTIONS (4)
  - ACUTE CORONARY SYNDROME [None]
  - ANGINA PECTORIS [None]
  - BLOOD PARATHYROID HORMONE DECREASED [None]
  - BLOOD PRESSURE DECREASED [None]
